FAERS Safety Report 16063993 (Version 1)
Quarter: 2019Q1

REPORT INFORMATION
  Report Type: Spontaneous
  Country: JP (occurrence: JP)
  Receive Date: 20190312
  Receipt Date: 20190312
  Transmission Date: 20190418
  Serious: Yes (Death, Other)
  Sender: FDA-Public Use
  Company Number: JP-INCYTE CORPORATION-2018IN013063

PATIENT

DRUGS (2)
  1. JAKAVI [Suspect]
     Active Substance: RUXOLITINIB
     Dosage: UNK
     Route: 048
     Dates: end: 201812
  2. JAKAVI [Suspect]
     Active Substance: RUXOLITINIB
     Indication: MYELOFIBROSIS
     Dosage: 5 MG, QD
     Route: 048

REACTIONS (5)
  - Blood lactate dehydrogenase increased [Unknown]
  - Pyrexia [Unknown]
  - Blood lactate dehydrogenase decreased [Unknown]
  - Myelofibrosis [Unknown]
  - Death [Fatal]

NARRATIVE: CASE EVENT DATE: 20181228
